FAERS Safety Report 21722614 (Version 3)
Quarter: 2023Q1

REPORT INFORMATION
  Report Type: Report from Study
  Country: US (occurrence: US)
  Receive Date: 20221213
  Receipt Date: 20230117
  Transmission Date: 20230417
  Serious: No
  Sender: FDA-Public Use
  Company Number: US-ABBVIE-4234257

PATIENT
  Sex: Female

DRUGS (2)
  1. VENCLEXTA [Suspect]
     Active Substance: VENETOCLAX
     Indication: Acute myeloid leukaemia
     Dosage: TOOK 4 TABLETS BY MOUTH ONCE DAILY WITH FOOD AND A FULL GLASS OF WAT
     Route: 048
  2. VENCLEXTA [Suspect]
     Active Substance: VENETOCLAX
     Indication: Acute myeloid leukaemia
     Dosage: WITH FOOD AND A FULL GLASS OF WATER FOR 14 DAYS ON THEN 14 DAYS OFF
     Route: 048

REACTIONS (3)
  - Back disorder [Unknown]
  - Abdominal pain upper [Recovering/Resolving]
  - Laboratory test abnormal [Recovering/Resolving]
